FAERS Safety Report 17237939 (Version 1)
Quarter: 2020Q1

REPORT INFORMATION
  Report Type: Spontaneous
  Country: US (occurrence: US)
  Receive Date: 20200106
  Receipt Date: 20200106
  Transmission Date: 20200409
  Serious: No
  Sender: FDA-Public Use
  Company Number: US-PACIRA-201800053

PATIENT
  Age: 67 Year
  Sex: Female

DRUGS (5)
  1. EPINEPHRINE. [Concomitant]
     Active Substance: EPINEPHRINE
     Indication: NERVE BLOCK
     Dosage: 4ML MIXTURE 50% LIPOSOMAL BUPIVACAINE 50% BUPIVACAINE 0.25% AND 1:200,000 EPINEPHRINE, SINGLE INJ
  2. HYALURONIDASE [Concomitant]
     Active Substance: HYALURONIDASE
     Indication: NERVE BLOCK
     Dosage: UNK, SINGLE, FREQUENCY : SINGLE
     Route: 065
  3. EXPAREL [Suspect]
     Active Substance: BUPIVACAINE
     Indication: NERVE BLOCK
  4. EXPAREL [Suspect]
     Active Substance: BUPIVACAINE
     Indication: NERVE BLOCK
     Dosage: 4ML MIXTURE 50% LIPOSOMAL BUPIVACAINE AND 50% BUPIVACAINE 0.25% 1:200,000 EPINEPHRINE SINGLE INJ
  5. BUPIVACAINE. [Concomitant]
     Active Substance: BUPIVACAINE
     Indication: NERVE BLOCK
     Dosage: 4ML MIXTURE 50% LIPOSOMAL BUPIVACAINE 50% BUPIVACAINE 0.25% AND 1:200,000 EPINEPHRINE SINGLE INJ

REACTIONS (2)
  - No adverse event [Unknown]
  - Off label use [Unknown]
